FAERS Safety Report 17411368 (Version 2)
Quarter: 2020Q1

REPORT INFORMATION
  Report Type: Spontaneous
  Country: US (occurrence: US)
  Receive Date: 20200212
  Receipt Date: 20200213
  Transmission Date: 20200409
  Serious: No
  Sender: FDA-Public Use
  Company Number: US-ROCHE-2546462

PATIENT
  Sex: Male

DRUGS (14)
  1. AZITHROMYCIN ANHYDROUS. [Concomitant]
     Active Substance: AZITHROMYCIN ANHYDROUS
  2. ATENOLOL. [Concomitant]
     Active Substance: ATENOLOL
  3. NIFEDIPINE. [Concomitant]
     Active Substance: NIFEDIPINE
  4. ESBRIET [Suspect]
     Active Substance: PIRFENIDONE
     Indication: PULMONARY FIBROSIS
     Route: 048
     Dates: start: 20190820
  5. GABAPENTIN. [Concomitant]
     Active Substance: GABAPENTIN
  6. MELOXICAM. [Concomitant]
     Active Substance: MELOXICAM
  7. SIMVASTATIN. [Concomitant]
     Active Substance: SIMVASTATIN
  8. BENZONATATE. [Concomitant]
     Active Substance: BENZONATATE
  9. DICLOFENAC [Concomitant]
     Active Substance: DICLOFENAC
  10. LISINOPRIL/HCTZ [Concomitant]
     Active Substance: HYDROCHLOROTHIAZIDE\LISINOPRIL
  11. OMEPRAZOLE. [Concomitant]
     Active Substance: OMEPRAZOLE
  12. NIACIN. [Concomitant]
     Active Substance: NIACIN
  13. HYDROCODONE BITARTRATE AND ACETAMINOPHEN [Concomitant]
     Active Substance: ACETAMINOPHEN\HYDROCODONE BITARTRATE
  14. PROMETHAZINE [Concomitant]
     Active Substance: PROMETHAZINE HYDROCHLORIDE

REACTIONS (2)
  - Cataract [Unknown]
  - Nasopharyngitis [Unknown]
